FAERS Safety Report 9318112 (Version 1)
Quarter: 2013Q2

REPORT INFORMATION
  Report Type: Spontaneous
  Country: GB (occurrence: GB)
  Receive Date: 20130530
  Receipt Date: 20130530
  Transmission Date: 20140414
  Serious: Yes (Hospitalization)
  Sender: FDA-Public Use
  Company Number: GB-TEVA-407950ISR

PATIENT
  Sex: Female

DRUGS (2)
  1. METRONIDAZOLE [Suspect]
     Dosage: UNKNOWN DOSAGE TAKEN PRIOR TO FIRST REACTION
     Route: 048
     Dates: start: 20130425, end: 20130426
  2. BENZYDAMINE HYDROCHLORIDE [Suspect]
     Dosage: UNKNOWN DOSE OR INTERVAL
     Route: 048
     Dates: start: 20130425, end: 20130426

REACTIONS (3)
  - Hypersensitivity [Recovering/Resolving]
  - Drug dispensing error [Recovered/Resolved]
  - Alcohol intolerance [Recovering/Resolving]
